FAERS Safety Report 6426756-4 (Version None)
Quarter: 2009Q4

REPORT INFORMATION
  Report Type: 
  Country: None (occurrence: None)
  Receive Date: 20091020
  Receipt Date: 20081104
  Transmission Date: 20100525
  Serious: Yes (Other)
  Sender: FDA-Public Use
  Company Number: 53974

PATIENT
  Sex: Female
  Weight: 78.0187 kg

DRUGS (2)
  1. METHOTREXATE [Suspect]
     Indication: RHEUMATOID ARTHRITIS
     Dosage: 25 MG SUBCUTANEOUSLY ONCE WEEKLY
     Route: 058
  2. NUMEROUS MEDICATIONS [Concomitant]

REACTIONS (1)
  - SKIN DISCOLOURATION [None]
